FAERS Safety Report 23865942 (Version 1)
Quarter: 2024Q2

REPORT INFORMATION
  Report Type: Spontaneous
  Country: US (occurrence: US)
  Receive Date: 20240517
  Receipt Date: 20240517
  Transmission Date: 20240716
  Serious: Yes (Hospitalization, Other)
  Sender: FDA-Public Use
  Company Number: US-009507513-2405USA003308

PATIENT
  Age: 53 Year
  Sex: Male

DRUGS (3)
  1. WELIREG [Suspect]
     Active Substance: BELZUTIFAN
     Indication: Renal cell carcinoma
     Dosage: UNK
     Route: 048
     Dates: start: 20240404, end: 202404
  2. WELIREG [Suspect]
     Active Substance: BELZUTIFAN
     Dosage: 40 MILLIGRAM, QD
     Route: 048
     Dates: start: 20240429
  3. FOTIVDA [Suspect]
     Active Substance: TIVOZANIB HYDROCHLORIDE
     Indication: Renal cell carcinoma
     Dosage: 1.34 MILLIGRAM, DAILY FOR 21 DAYS WITH 7 DAYS OFF (28-DAY CYCLE)
     Route: 048
     Dates: start: 20231127

REACTIONS (16)
  - Loss of consciousness [Unknown]
  - Hypoaesthesia oral [Unknown]
  - Hypoaesthesia [Unknown]
  - Dyspnoea [Unknown]
  - Haemoglobin decreased [Unknown]
  - Vomiting [Unknown]
  - Nausea [Unknown]
  - Decreased appetite [Unknown]
  - Cough [Unknown]
  - Oxygen saturation decreased [Unknown]
  - Orthostatic hypotension [Unknown]
  - Dizziness [Unknown]
  - Thirst [Unknown]
  - Haematocrit decreased [Unknown]
  - Gait inability [Unknown]
  - Metabolic disorder [Unknown]
